FAERS Safety Report 4896230-5 (Version None)
Quarter: 2006Q1

REPORT INFORMATION
  Report Type: 
  Country: None (occurrence: None)
  Receive Date: 20060126
  Receipt Date: 20060119
  Transmission Date: 20060701
  Serious: Yes (Death)
  Sender: FDA-Public Use
  Company Number: A001-002-006749

PATIENT
  Age: 66 Year
  Sex: Female

DRUGS (1)
  1. ARICEPT [Suspect]
     Indication: AMNESIA
     Dosage: ORAL
     Route: 048
     Dates: start: 20050201, end: 20050501

REACTIONS (1)
  - CEREBRAL HAEMORRHAGE [None]
